FAERS Safety Report 5328246-9 (Version None)
Quarter: 2007Q2

REPORT INFORMATION
  Report Type: 
  Country: None (occurrence: None)
  Receive Date: 20070515
  Receipt Date: 20070515
  Transmission Date: 20071010
  Serious: Yes (Life-Threatening)
  Sender: FDA-Public Use
  Company Number: None

PATIENT
  Sex: Female
  Weight: 74.8435 kg

DRUGS (1)
  1. AMBIEN [Suspect]
     Indication: INSOMNIA
     Dosage: 1/2 TO 1 TABLET AS NEEDED PO
     Route: 048

REACTIONS (3)
  - ABNORMAL SLEEP-RELATED EVENT [None]
  - HEAD INJURY [None]
  - NIGHTMARE [None]
